FAERS Safety Report 8500745-8 (Version None)
Quarter: 2012Q3

REPORT INFORMATION
  Report Type: 
  Country: None (occurrence: None)
  Receive Date: 20120710
  Receipt Date: 20120627
  Transmission Date: 20120928
  Serious: No
  Sender: FDA-Public Use
  Company Number: US-ASTRAZENECA-2012SE43824

PATIENT
  Age: 59 Year
  Sex: Female

DRUGS (4)
  1. SYMBICORT [Suspect]
     Dosage: 160 MCG, BID
     Route: 055
     Dates: start: 20070101
  2. SINGULAIR [Concomitant]
  3. SYMBICORT [Suspect]
     Dosage: 160 MCG, BID
     Route: 055
  4. ALBUTEROL [Concomitant]

REACTIONS (3)
  - CONDITION AGGRAVATED [None]
  - CHEST DISCOMFORT [None]
  - DRUG DOSE OMISSION [None]
